FAERS Safety Report 17866436 (Version 2)
Quarter: 2020Q3

REPORT INFORMATION
  Report Type: Spontaneous
  Country: US (occurrence: US)
  Receive Date: 20200605
  Receipt Date: 20200727
  Transmission Date: 20201103
  Serious: No
  Sender: FDA-Public Use
  Company Number: US-GLAXOSMITHKLINE-US2020093485

PATIENT
  Age: 31 Year
  Sex: Female

DRUGS (1)
  1. BENLYSTA [Suspect]
     Active Substance: BELIMUMAB
     Indication: PRODUCT USED FOR UNKNOWN INDICATION
     Dosage: UNK
     Route: 065
     Dates: start: 2019

REACTIONS (6)
  - Accidental exposure to product [Unknown]
  - Burning sensation [Unknown]
  - Product dose omission issue [Unknown]
  - Product complaint [Unknown]
  - Exposure via skin contact [Unknown]
  - Pain [Unknown]

NARRATIVE: CASE EVENT DATE: 20200603
